FAERS Safety Report 20102674 (Version 5)
Quarter: 2022Q4

REPORT INFORMATION
  Report Type: Report from Study
  Country: US (occurrence: US)
  Receive Date: 20211123
  Receipt Date: 20221028
  Transmission Date: 20230113
  Serious: Yes (Hospitalization, Other)
  Sender: FDA-Public Use
  Company Number: US-TAKEDA-2020TUS047097

PATIENT
  Sex: Female

DRUGS (2)
  1. HUMAN IMMUNOGLOBULIN G\HYALURONIDASE RECOMBINANT HUMAN [Suspect]
     Active Substance: HUMAN IMMUNOGLOBULIN G\HYALURONIDASE RECOMBINANT HUMAN
     Indication: Immunodeficiency common variable
     Dosage: UNK
     Route: 065
  2. CUVITRU [Suspect]
     Active Substance: HUMAN IMMUNOGLOBULIN G
     Indication: Immunodeficiency common variable
     Dosage: UNK
     Route: 065

REACTIONS (28)
  - Syncope [Unknown]
  - Head injury [Unknown]
  - Transient ischaemic attack [Unknown]
  - Angina pectoris [Unknown]
  - Loss of consciousness [Unknown]
  - Depressed mood [Unknown]
  - Bladder disorder [Unknown]
  - Stress [Unknown]
  - Respiratory tract congestion [Unknown]
  - Fatigue [Unknown]
  - Visual impairment [Unknown]
  - White blood cell count decreased [Unknown]
  - Stomatitis [Unknown]
  - Dysphonia [Unknown]
  - Herpes zoster [Unknown]
  - Pyrexia [Unknown]
  - Dyspnoea [Unknown]
  - Immunoglobulins increased [Unknown]
  - Infusion site bruising [Unknown]
  - Infusion site pain [Unknown]
  - Asthenia [Unknown]
  - Bone pain [Unknown]
  - Herpes zoster [Unknown]
  - Fall [Unknown]
  - Ligament sprain [Unknown]
  - Arthralgia [Unknown]
  - Inappropriate schedule of product administration [Unknown]
  - Incorrect drug administration rate [Unknown]
